FAERS Safety Report 24940129 (Version 1)
Quarter: 2025Q1

REPORT INFORMATION
  Report Type: Report from Study
  Country: CN (occurrence: CN)
  Receive Date: 20250207
  Receipt Date: 20250207
  Transmission Date: 20250409
  Serious: Yes (Other)
  Sender: PHARMACOSMOS A/S
  Company Number: CN-G1 THERAPEUTICS-2024G1CN0000055

PATIENT
  Sex: Male

DRUGS (9)
  1. CARBOPLATIN [Suspect]
     Active Substance: CARBOPLATIN
     Indication: Non-small cell lung cancer
     Dates: start: 202311, end: 202403
  2. CARBOPLATIN [Suspect]
     Active Substance: CARBOPLATIN
     Indication: Non-small cell lung cancer
     Dates: start: 20240401, end: 20240405
  3. CARBOPLATIN [Suspect]
     Active Substance: CARBOPLATIN
     Indication: Non-small cell lung cancer
     Dates: start: 20240507, end: 20240510
  4. PACLITAXEL [Suspect]
     Active Substance: PACLITAXEL
     Indication: Non-small cell lung cancer
     Dates: start: 202311, end: 202403
  5. PACLITAXEL [Suspect]
     Active Substance: PACLITAXEL
     Indication: Non-small cell lung cancer
     Dates: start: 20240401, end: 20240405
  6. PACLITAXEL [Suspect]
     Active Substance: PACLITAXEL
     Indication: Non-small cell lung cancer
     Dates: start: 20240507, end: 20240510
  7. TRILACICLIB [Suspect]
     Active Substance: TRILACICLIB
     Indication: Non-small cell lung cancer
     Dates: start: 202311, end: 202403
  8. TRILACICLIB [Suspect]
     Active Substance: TRILACICLIB
     Indication: Non-small cell lung cancer
     Dates: start: 20240507, end: 20240510
  9. TRILACICLIB [Suspect]
     Active Substance: TRILACICLIB
     Indication: Non-small cell lung cancer
     Dates: start: 20240401, end: 20240405

REACTIONS (2)
  - White blood cell count decreased [Recovering/Resolving]
  - Atrial fibrillation [Recovering/Resolving]

NARRATIVE: CASE EVENT DATE: 20240401
